FAERS Safety Report 4676681-4 (Version None)
Quarter: 2005Q2

REPORT INFORMATION
  Report Type: 
  Country: None (occurrence: None)
  Receive Date: 20050527
  Receipt Date: 20050517
  Transmission Date: 20051028
  Serious: Yes (Hospitalization)
  Sender: FDA-Public Use
  Company Number: 2005UW07610

PATIENT
  Age: 59 Year
  Sex: Male
  Weight: 100 kg

DRUGS (7)
  1. CRESTOR [Suspect]
     Route: 048
     Dates: start: 20040701
  2. ZOCOR [Suspect]
  3. LOTREL [Concomitant]
     Dosage: 10/20 MG
     Route: 048
  4. ATIVAN [Concomitant]
  5. LORTAB [Concomitant]
     Dosage: 5/500 MG
  6. ADVAIR DISKUS 100/50 [Concomitant]
  7. COMBIVENT [Concomitant]
     Route: 055

REACTIONS (20)
  - ABDOMINAL PAIN [None]
  - BLINDNESS [None]
  - CEREBRAL ARTERY OCCLUSION [None]
  - CEREBRAL ISCHAEMIA [None]
  - CHEST PAIN [None]
  - CHOLELITHIASIS [None]
  - CHRONIC OBSTRUCTIVE PULMONARY DISEASE [None]
  - CONVULSION [None]
  - DYSKINESIA [None]
  - HEPATIC ENZYME INCREASED [None]
  - HEPATIC STEATOSIS [None]
  - HYPOXIA [None]
  - MUSCLE SPASMS [None]
  - OSTEOPENIA [None]
  - RENAL FAILURE [None]
  - RHABDOMYOLYSIS [None]
  - SPEECH DISORDER [None]
  - SPINAL FRACTURE [None]
  - TORTICOLLIS [None]
  - TREMOR [None]
